FAERS Safety Report 22399648 (Version 2)
Quarter: 2024Q2

REPORT INFORMATION
  Report Type: Spontaneous
  Country: IN (occurrence: IN)
  Receive Date: 20230602
  Receipt Date: 20240621
  Transmission Date: 20240716
  Serious: Yes (Death, Other)
  Sender: FDA-Public Use
  Company Number: IN-AMGEN-INDSP2023092476

PATIENT

DRUGS (4)
  1. ROMIPLOSTIM [Suspect]
     Active Substance: ROMIPLOSTIM
     Indication: Aplastic anaemia
     Dosage: 5 MICROGRAM/KG, QWK FOR ONE MONTH
     Route: 065
  2. ROMIPLOSTIM [Suspect]
     Active Substance: ROMIPLOSTIM
     Dosage: 10 MICROGRAM/KG, QWK FOR NEXT FIVE MONTHS
     Route: 065
  3. CYCLOSPORINE [Concomitant]
     Active Substance: CYCLOSPORINE
     Indication: Aplastic anaemia
     Dosage: 5 MILLIGRAM PER KILOGRAM, QD, FOR 12 MONTHS
     Route: 065
  4. CYCLOSPORINE [Concomitant]
     Active Substance: CYCLOSPORINE
     Dosage: 25 MILLIGRAM, Q3MO

REACTIONS (14)
  - Infection [Fatal]
  - Sepsis [Fatal]
  - Pneumonia [Fatal]
  - Cerebral haematoma [Fatal]
  - Febrile neutropenia [Unknown]
  - Posterior reversible encephalopathy syndrome [Unknown]
  - Haemorrhage intracranial [Unknown]
  - Adverse event [Unknown]
  - Therapy non-responder [Unknown]
  - Therapy partial responder [Unknown]
  - Off label use [Unknown]
  - Hypertension [Unknown]
  - Gingival hypertrophy [Unknown]
  - Serum sickness [Unknown]
